FAERS Safety Report 5212462-0 (Version None)
Quarter: 2007Q1

REPORT INFORMATION
  Report Type: 
  Country: None (occurrence: None)
  Receive Date: 20070118
  Receipt Date: 20070111
  Transmission Date: 20070707
  Serious: Yes (Other)
  Sender: FDA-Public Use
  Company Number: DE-SHR-DE-2006-012304

PATIENT
  Age: 25 Year
  Sex: Female
  Weight: 90 kg

DRUGS (1)
  1. MIRENA [Suspect]
     Dosage: 20 A?G/DAY, CONT
     Route: 015

REACTIONS (5)
  - INTRA-UTERINE CONTRACEPTIVE DEVICE EXPELLED [None]
  - IUCD COMPLICATION [None]
  - NORMAL NEWBORN [None]
  - PREGNANCY WITH CONTRACEPTIVE DEVICE [None]
  - RETAINED PLACENTA OR MEMBRANES [None]
